FAERS Safety Report 22173316 (Version 1)
Quarter: 2023Q2

REPORT INFORMATION
  Report Type: Spontaneous
  Country: US (occurrence: None)
  Receive Date: 20230404
  Receipt Date: 20230404
  Transmission Date: 20230722
  Serious: Yes (Hospitalization)
  Sender: FDA-Public Use
  Company Number: None

PATIENT
  Sex: Female

DRUGS (1)
  1. FORTEO [Suspect]
     Active Substance: TERIPARATIDE
     Indication: Osteoporosis
     Dosage: 20MCG DALY SUBCUTANEOUS?
     Route: 058
     Dates: start: 20210805

REACTIONS (3)
  - Patella fracture [None]
  - Rib fracture [None]
  - Body height decreased [None]
